FAERS Safety Report 19006720 (Version 1)
Quarter: 2021Q1

REPORT INFORMATION
  Report Type: Spontaneous
  Country: US (occurrence: US)
  Receive Date: 20210312
  Receipt Date: 20210312
  Transmission Date: 20210420
  Serious: Yes (Other)
  Sender: FDA-Public Use
  Company Number: None

PATIENT
  Age: 5 Year
  Sex: Male
  Weight: 15.75 kg

DRUGS (10)
  1. CIPROFLOXACIN. [Suspect]
     Active Substance: CIPROFLOXACIN
     Indication: BACTERIAL DISEASE CARRIER
     Dates: start: 20160101, end: 20160114
  2. CIPROFLOXACIN. [Suspect]
     Active Substance: CIPROFLOXACIN
     Indication: PSEUDOMONAL BACTERAEMIA
     Dates: start: 20160101, end: 20160114
  3. DEPAKOTE [Concomitant]
     Active Substance: DIVALPROEX SODIUM
  4. AMITRIPTYLINE [Concomitant]
     Active Substance: AMITRIPTYLINE
  5. CLARITIN [Concomitant]
     Active Substance: LORATADINE
  6. VITAMIN D [Concomitant]
     Active Substance: VITAMIN D NOS
  7. CIPROFLOXACIN. [Suspect]
     Active Substance: CIPROFLOXACIN
     Indication: GASTROENTERITIS PSEUDOMONAS
     Dates: start: 20160101, end: 20160114
  8. CLONIDINE. [Concomitant]
     Active Substance: CLONIDINE
  9. COPPER [Concomitant]
     Active Substance: COPPER
  10. PROBIOTIC [Concomitant]
     Active Substance: PROBIOTICS NOS

REACTIONS (10)
  - Tourette^s disorder [None]
  - Depression [None]
  - Treatment failure [None]
  - Mental disorder [None]
  - Nervous system disorder [None]
  - Panic attack [None]
  - Aggression [None]
  - Tic [None]
  - Anger [None]
  - Psychomotor disadaptation syndrome [None]

NARRATIVE: CASE EVENT DATE: 20170101
